FAERS Safety Report 25869919 (Version 1)
Quarter: 2025Q4

REPORT INFORMATION
  Report Type: Spontaneous
  Country: US (occurrence: US)
  Receive Date: 20251001
  Receipt Date: 20251001
  Transmission Date: 20260117
  Serious: No
  Sender: RECKITT BENCKISER
  Company Number: US-INDIVIOR US-INDV-157278-2024

PATIENT
  Sex: Male
  Weight: 76.145 kg

DRUGS (2)
  1. SUBOXONE [Suspect]
     Active Substance: BUPRENORPHINE HYDROCHLORIDE\NALOXONE HYDROCHLORIDE
     Indication: Drug use disorder
     Dosage: TAKING 8 MG IN DIVIDED DOSES,
     Route: 065
     Dates: start: 20220804
  2. BUPRENORPHINE\NALOXONE [Suspect]
     Active Substance: BUPRENORPHINE\NALOXONE
     Indication: Drug use disorder
     Dosage: 8 MILLIGRAM
     Route: 065
     Dates: start: 20200903, end: 2024

REACTIONS (8)
  - Dental caries [Unknown]
  - Tooth erosion [Unknown]
  - Migraine [Unknown]
  - Hepatitis C [Unknown]
  - Ear injury [Unknown]
  - Insomnia [Unknown]
  - Panic attack [Unknown]
  - Inappropriate schedule of product administration [Unknown]
